FAERS Safety Report 11112788 (Version 1)
Quarter: 2015Q2

REPORT INFORMATION
  Report Type: Spontaneous
  Country: US (occurrence: US)
  Receive Date: 20150514
  Receipt Date: 20150514
  Transmission Date: 20150821
  Serious: Yes (Hospitalization, Disabling, Other)
  Sender: FDA-Public Use
  Company Number: US-009507513-1204USA00523

PATIENT
  Sex: Female
  Weight: 81.63 kg

DRUGS (14)
  1. ARAVA [Concomitant]
     Active Substance: LEFLUNOMIDE
     Indication: RHEUMATOID ARTHRITIS
     Dosage: 20 MG, DAILY
     Route: 048
  2. ZANAFLEX [Concomitant]
     Active Substance: TIZANIDINE HYDROCHLORIDE
     Dosage: 4 MG, BEDTIME
     Route: 048
  3. FOSAMAX [Suspect]
     Active Substance: ALENDRONATE SODIUM
     Indication: OSTEOPOROSIS
     Dosage: 70 MG, WEEKLY ON SATURDAYS
     Route: 048
     Dates: start: 20020627, end: 20100523
  4. FOSAMAX [Suspect]
     Active Substance: ALENDRONATE SODIUM
     Indication: OSTEOPENIA
  5. ENBREL [Concomitant]
     Active Substance: ETANERCEPT
     Indication: RHEUMATOID ARTHRITIS
     Dosage: 50 MG, WEEKLY
     Route: 058
  6. PROTONIX [Concomitant]
     Active Substance: PANTOPRAZOLE SODIUM
     Dosage: 40 MG, DAILY
     Route: 048
  7. FOSAMAX [Suspect]
     Active Substance: ALENDRONATE SODIUM
     Indication: OSTEOPOROSIS
     Route: 048
     Dates: start: 2002, end: 2010
  8. PREDNISONE. [Concomitant]
     Active Substance: PREDNISONE
     Indication: RHEUMATOID ARTHRITIS
     Dosage: 5-10 MG, DAILY
     Route: 048
     Dates: start: 1994
  9. FOSAMAX [Suspect]
     Active Substance: ALENDRONATE SODIUM
     Indication: OSTEOPENIA
  10. ATENOLOL. [Concomitant]
     Active Substance: ATENOLOL
     Dosage: 25 MG, DAILY
     Route: 048
  11. ALENDRONATE SODIUM. [Suspect]
     Active Substance: ALENDRONATE SODIUM
     Dosage: 70 MG, WEEKLY
     Dates: start: 20080327, end: 20100126
  12. CALCIUM (UNSPECIFIED) [Concomitant]
     Active Substance: CALCIUM
     Dosage: 500 MG, BID
     Route: 048
  13. NEURONTIN [Concomitant]
     Active Substance: GABAPENTIN
     Dosage: 300 MG, BEDTIME
     Route: 048
  14. PRILOSEC [Concomitant]
     Active Substance: OMEPRAZOLE MAGNESIUM
     Dosage: 20 MG, BEDTIME
     Route: 048

REACTIONS (32)
  - Intramedullary rod insertion [Recovered/Resolved]
  - Breast cyst excision [Unknown]
  - Carpal tunnel decompression [Unknown]
  - Bronchitis [Unknown]
  - Urinary tract infection [Unknown]
  - Osteoarthritis [Unknown]
  - Bone disorder [Unknown]
  - Hysterectomy [Unknown]
  - Bursitis [Not Recovered/Not Resolved]
  - Mitral valve prolapse [Unknown]
  - Procedural vomiting [Unknown]
  - Pulmonary embolism [Unknown]
  - Foot operation [Unknown]
  - Left ventricular hypertrophy [Unknown]
  - Skin disorder [Unknown]
  - Intramedullary rod insertion [Unknown]
  - Procedural nausea [Unknown]
  - Femur fracture [Unknown]
  - Intervertebral disc disorder [Unknown]
  - Cyst removal [Unknown]
  - Ligament sprain [Unknown]
  - Femur fracture [Recovered/Resolved]
  - Hypertension [Unknown]
  - Deep vein thrombosis [Unknown]
  - Radius fracture [Unknown]
  - Haemorrhagic anaemia [Unknown]
  - Back pain [Not Recovered/Not Resolved]
  - Scoliosis [Unknown]
  - Foot deformity [Unknown]
  - Hypocalcaemia [Unknown]
  - Haemorrhagic anaemia [Recovering/Resolving]
  - Gastrooesophageal reflux disease [Unknown]

NARRATIVE: CASE EVENT DATE: 20090101
